FAERS Safety Report 7340326-5 (Version None)
Quarter: 2011Q1

REPORT INFORMATION
  Report Type: 
  Country: None (occurrence: None)
  Receive Date: 20110309
  Receipt Date: 20110302
  Transmission Date: 20110831
  Serious: No
  Sender: FDA-Public Use
  Company Number: US-BIOGENIDEC-2010BI039719

PATIENT
  Age: 44 Year
  Sex: Female

DRUGS (1)
  1. TYSABRI [Suspect]
     Indication: MULTIPLE SCLEROSIS
     Route: 042
     Dates: start: 20100917

REACTIONS (10)
  - GAIT DISTURBANCE [None]
  - PAIN IN EXTREMITY [None]
  - MUSCLE SPASTICITY [None]
  - BALANCE DISORDER [None]
  - ASTHENIA [None]
  - FATIGUE [None]
  - ORAL FUNGAL INFECTION [None]
  - RASH [None]
  - MUSCULOSKELETAL DISORDER [None]
  - CYSTITIS [None]
